FAERS Safety Report 16998521 (Version 2)
Quarter: 2020Q2

REPORT INFORMATION
  Report Type: Spontaneous
  Country: US (occurrence: US)
  Receive Date: 20191105
  Receipt Date: 20200501
  Transmission Date: 20200713
  Serious: No
  Sender: FDA-Public Use
  Company Number: US-RADIUS HEALTH INC.-2019US002628

PATIENT
  Age: 67 Year
  Sex: Female

DRUGS (6)
  1. TYMLOS [Suspect]
     Active Substance: ABALOPARATIDE
     Dosage: 80 MCG,
     Route: 058
  2. TYMLOS [Suspect]
     Active Substance: ABALOPARATIDE
     Indication: OSTEOPOROSIS POSTMENOPAUSAL
     Dosage: 80 MCG, DAILY
     Route: 058
     Dates: start: 20190724
  3. SIMVASTATIN. [Concomitant]
     Active Substance: SIMVASTATIN
     Indication: PRODUCT USED FOR UNKNOWN INDICATION
  4. TYMLOS [Suspect]
     Active Substance: ABALOPARATIDE
     Dosage: 80 MCG, DAILY
     Route: 058
     Dates: start: 20190724
  5. TYMLOS [Suspect]
     Active Substance: ABALOPARATIDE
     Dosage: 80 MCG, DAILY
     Route: 058
     Dates: start: 20190724
  6. LISINOPRIL                         /00894002/ [Concomitant]
     Active Substance: LISINOPRIL
     Indication: PRODUCT USED FOR UNKNOWN INDICATION

REACTIONS (7)
  - Product quality issue [Not Recovered/Not Resolved]
  - Injection site bruising [Unknown]
  - Product dose omission [Not Recovered/Not Resolved]
  - Injection site swelling [Not Recovered/Not Resolved]
  - Headache [Unknown]
  - Injection site erythema [Unknown]
  - Injection site pain [Unknown]

NARRATIVE: CASE EVENT DATE: 20190730
